FAERS Safety Report 7603709-1 (Version None)
Quarter: 2011Q3

REPORT INFORMATION
  Report Type: 
  Country: None (occurrence: None)
  Receive Date: 20110712
  Receipt Date: 20110622
  Transmission Date: 20111222
  Serious: Yes (Hospitalization)
  Sender: FDA-Public Use
  Company Number: US-PFIZER INC-2011139717

PATIENT
  Sex: Female
  Weight: 75.3 kg

DRUGS (3)
  1. LO/OVRAL-28 AND FERROUS FUMARATE [Suspect]
     Indication: OFF LABEL USE
     Dosage: UNK
     Dates: start: 20060522
  2. PARAGARD T 380A [Suspect]
     Indication: CONTRACEPTION
     Dosage: UNK
     Route: 012
     Dates: start: 20051220, end: 20060619
  3. LO/OVRAL-28 AND FERROUS FUMARATE [Suspect]
     Indication: VAGINAL HAEMORRHAGE

REACTIONS (1)
  - CEREBROVASCULAR ACCIDENT [None]
